FAERS Safety Report 9177541 (Version 2)
Quarter: 2013Q2

REPORT INFORMATION
  Report Type: Spontaneous
  Country: US (occurrence: US)
  Receive Date: 20130321
  Receipt Date: 20130404
  Transmission Date: 20140414
  Serious: Yes (Other)
  Sender: FDA-Public Use
  Company Number: US-PFIZER INC-2013089044

PATIENT
  Age: 51 Year
  Sex: Female
  Weight: 63.49 kg

DRUGS (8)
  1. GEODON [Suspect]
     Indication: SCHIZOPHRENIA
     Dosage: 80 MG, DAILY
     Dates: start: 2008
  2. GEODON [Suspect]
     Dosage: 80 MG, 1X/DAY
     Dates: start: 201303
  3. ZYPREXA [Suspect]
     Indication: SCHIZOPHRENIA
     Dosage: UNK
  4. RISPERDAL [Suspect]
     Indication: SCHIZOPHRENIA
     Dosage: UNK
  5. ABILIFY [Suspect]
     Indication: SCHIZOPHRENIA
     Dosage: UNK
  6. SEROQUEL [Suspect]
     Indication: SCHIZOPHRENIA
     Dosage: UNK
  7. TOPROL XL [Concomitant]
     Indication: HYPERTENSION
     Dosage: 100 MG, DAILY
  8. NORVASC [Concomitant]
     Indication: HYPERTENSION
     Dosage: 5 MG, 1X/DAY

REACTIONS (5)
  - Apparent death [Unknown]
  - Weight increased [Unknown]
  - Expired drug administered [Unknown]
  - Anxiety [Not Recovered/Not Resolved]
  - Blood cholesterol increased [Unknown]
